FAERS Safety Report 10230854 (Version 1)
Quarter: 2014Q2

REPORT INFORMATION
  Report Type: Spontaneous
  Country: US (occurrence: None)
  Receive Date: 20140610
  Receipt Date: 20140610
  Transmission Date: 20141212
  Serious: Yes (Disabling)
  Sender: FDA-Public Use
  Company Number: None

PATIENT
  Age: 42 Year
  Sex: Female
  Weight: 47.63 kg

DRUGS (1)
  1. TERBINAFINE ( LAMISIL) [Suspect]
     Indication: ONYCHOMYCOSIS
     Dosage: ONE PILL PER DAY ONCE DAILY

REACTIONS (6)
  - Dysgeusia [None]
  - Gingival bleeding [None]
  - Swollen tongue [None]
  - Sensory disturbance [None]
  - Hypoaesthesia [None]
  - Depression [None]
